FAERS Safety Report 25277496 (Version 4)
Quarter: 2025Q2

REPORT INFORMATION
  Report Type: Spontaneous
  Country: IT (occurrence: IT)
  Receive Date: 20250507
  Receipt Date: 20250617
  Transmission Date: 20250717
  Serious: Yes (Death, Other)
  Sender: BRACCO
  Company Number: None

PATIENT
  Age: 64 Year
  Sex: Female

DRUGS (1)
  1. IOMERON [Suspect]
     Active Substance: IOMEPROL
     Indication: Computerised tomogram abdomen
     Route: 042
     Dates: start: 20250424, end: 20250424

REACTIONS (3)
  - Nausea [Fatal]
  - Vomiting [Fatal]
  - Cardiac arrest [Fatal]

NARRATIVE: CASE EVENT DATE: 20250424
